FAERS Safety Report 5238784-5 (Version None)
Quarter: 2007Q1

REPORT INFORMATION
  Report Type: 
  Country: None (occurrence: None)
  Receive Date: 20070215
  Receipt Date: 20070206
  Transmission Date: 20070707
  Serious: Yes (Hospitalization)
  Sender: FDA-Public Use
  Company Number: NL-PFIZER INC-2006094799

PATIENT
  Sex: Male
  Weight: 77 kg

DRUGS (11)
  1. SU-011,248 [Suspect]
     Indication: RENAL CELL CARCINOMA STAGE UNSPECIFIED
     Route: 048
     Dates: start: 20060706, end: 20060724
  2. SU-011,248 [Suspect]
     Route: 048
     Dates: start: 20060808, end: 20060817
  3. METOPROLOL SUCCINATE [Concomitant]
     Dosage: TEXT:UNKNOWN-FREQ:UNKNOWN
     Route: 048
  4. ISOSORBIDE MONONITRATE [Concomitant]
     Dosage: TEXT:UNKNOWN-FREQ:UNKNOWN
     Route: 048
     Dates: start: 19900101
  5. CALCIUM [Concomitant]
     Dosage: TEXT:UNKNOWN-FREQ:UNKNOWN
     Route: 048
     Dates: start: 19900101
  6. ESOMEPRAZOLE MAGNESIUM [Concomitant]
     Dosage: TEXT:UNKNOWN-FREQ:UNKNOWN
     Route: 048
     Dates: start: 19900101
  7. PRAVASTATIN [Concomitant]
     Dosage: TEXT:UNKNOWN-FREQ:UNKNOWN
     Route: 048
     Dates: start: 19900101, end: 20060724
  8. OXAZEPAM [Concomitant]
     Dosage: TEXT:UNKNOWN-FREQ:UNKNOWN
     Route: 048
     Dates: start: 19920101
  9. NITROGLYCERIN [Concomitant]
     Dosage: TEXT:UNKNOWN-FREQ:UNKNOWN
     Route: 060
     Dates: start: 19900101
  10. SALMETEROL [Concomitant]
     Dosage: TEXT:UNKNOWN-FREQ:UNKNOWN
     Route: 065
     Dates: start: 20050101
  11. PARACETAMOL [Concomitant]
     Dosage: TEXT:UNKNOWN-FREQ:UNKNOWN
     Route: 048
     Dates: start: 20060706

REACTIONS (16)
  - ABNORMAL BEHAVIOUR [None]
  - ANXIETY [None]
  - APATHY [None]
  - BRADYPHRENIA [None]
  - CONFUSIONAL STATE [None]
  - CYSTITIS [None]
  - DISORIENTATION [None]
  - DISTURBANCE IN ATTENTION [None]
  - GAIT DISTURBANCE [None]
  - HEADACHE [None]
  - HYPERSOMNIA [None]
  - INCONTINENCE [None]
  - MUSCLE RIGIDITY [None]
  - SOMNOLENCE [None]
  - TREMOR [None]
  - VASCULAR DEMENTIA [None]
